FAERS Safety Report 7066445-9 (Version None)
Quarter: 2010Q4

REPORT INFORMATION
  Report Type: 
  Country: None (occurrence: None)
  Receive Date: 20101027
  Receipt Date: 20100113
  Transmission Date: 20110411
  Serious: No
  Sender: FDA-Public Use
  Company Number: US-WYE-H13006310

PATIENT
  Age: 64 Year
  Sex: Female

DRUGS (1)
  1. PREMPRO [Suspect]
     Dosage: UNKNOWN
     Route: 065

REACTIONS (5)
  - METRORRHAGIA [None]
  - PRODUCT COATING ISSUE [None]
  - PRODUCT COLOUR ISSUE [None]
  - PRODUCT PACKAGING ISSUE [None]
  - PRODUCT TASTE ABNORMAL [None]
